FAERS Safety Report 5491883-5 (Version None)
Quarter: 2007Q4

REPORT INFORMATION
  Report Type: 
  Country: None (occurrence: None)
  Receive Date: 20071018
  Receipt Date: 20071004
  Transmission Date: 20080405
  Serious: Yes (Other)
  Sender: FDA-Public Use
  Company Number: 2007S1008518

PATIENT
  Age: 21 Year
  Sex: Female

DRUGS (2)
  1. AMNESTEEM [Suspect]
     Dosage: 40 MG;DAILY;ORAL; 40 MG;DAILY;ORAL
     Route: 048
     Dates: end: 20070817
  2. AMNESTEEM [Suspect]
     Dosage: 40 MG;DAILY;ORAL; 40 MG;DAILY;ORAL
     Route: 048
     Dates: start: 20060714

REACTIONS (2)
  - DRUG EXPOSURE DURING PREGNANCY [None]
  - PREGNANCY [None]
